FAERS Safety Report 23826204 (Version 1)
Quarter: 2024Q2

REPORT INFORMATION
  Report Type: Spontaneous
  Country: US (occurrence: None)
  Receive Date: 20240506
  Receipt Date: 20240506
  Transmission Date: 20240715
  Serious: Yes (Hospitalization)
  Sender: FDA-Public Use
  Company Number: None

PATIENT
  Age: 69 Year
  Sex: Female

DRUGS (3)
  1. DOXYCYCLINE [Suspect]
     Active Substance: DOXYCYCLINE
     Indication: Arthropod bite
     Dosage: FREQUENCY : TWICE A DAY;?
     Route: 048
     Dates: start: 20230414, end: 20230424
  2. MELOXICAM [Concomitant]
     Active Substance: MELOXICAM
  3. ATORVASTATIN [Concomitant]
     Active Substance: ATORVASTATIN
     Dates: start: 20230101, end: 20230417

REACTIONS (8)
  - Drug-induced liver injury [None]
  - Autoimmune hepatitis [None]
  - Therapy cessation [None]
  - Abdominal discomfort [None]
  - Headache [None]
  - Blood pressure fluctuation [None]
  - Dizziness postural [None]
  - Vanishing bile duct syndrome [None]

NARRATIVE: CASE EVENT DATE: 20230424
